FAERS Safety Report 16356692 (Version 1)
Quarter: 2019Q2

REPORT INFORMATION
  Report Type: Spontaneous
  Country: US (occurrence: US)
  Receive Date: 20190527
  Receipt Date: 20190527
  Transmission Date: 20190711
  Serious: No
  Sender: FDA-Public Use
  Company Number: US-009507513-1905USA005681

PATIENT
  Sex: Male

DRUGS (1)
  1. PROVENTIL [Suspect]
     Active Substance: ALBUTEROL
     Dosage: PRODUCT CIRCULAR #: 34-8720-1598-6

REACTIONS (5)
  - Muscle spasms [Unknown]
  - Oral discomfort [Unknown]
  - Dry mouth [Unknown]
  - Speech disorder [Unknown]
  - Swollen tongue [Unknown]
